FAERS Safety Report 7593567-6 (Version None)
Quarter: 2011Q2

REPORT INFORMATION
  Report Type: 
  Country: None (occurrence: None)
  Receive Date: 20110628
  Receipt Date: 20110615
  Transmission Date: 20111010
  Serious: Yes (Other)
  Sender: FDA-Public Use
  Company Number: DE-1186738

PATIENT
  Age: 80 Year
  Sex: Male

DRUGS (8)
  1. FLUORESCITE [Suspect]
     Indication: ANGIOGRAM RETINA
     Dosage: INTRAVENOUS BOLUS
     Route: 040
     Dates: start: 20110517
  2. METOPROLOL TARTRATE [Concomitant]
  3. ALFUZOSIN HCL [Concomitant]
  4. LISODURA [Concomitant]
  5. ASPIRIN [Concomitant]
  6. ISOSORBIDE DINITRATE [Concomitant]
  7. GLIBEN HEXAL [Concomitant]
  8. SIMVASTATIN [Concomitant]

REACTIONS (3)
  - CHOKING [None]
  - NAUSEA [None]
  - HYPERSENSITIVITY [None]
